FAERS Safety Report 5805008-7 (Version None)
Quarter: 2008Q3

REPORT INFORMATION
  Report Type: 
  Country: None (occurrence: None)
  Receive Date: 20080707
  Receipt Date: 20070828
  Transmission Date: 20090109
  Serious: Yes (Hospitalization)
  Sender: FDA-Public Use
  Company Number: 513794

PATIENT
  Age: 58 Year
  Sex: Female

DRUGS (2)
  1. MYCOPHENOLATE MOFETIL [Suspect]
     Indication: VASCULITIS
     Dosage: 1000 MG  2 PER DAY
  2. HYDROXYCHLOROQUIE SULPHATE (HYDROXYCHLOROQUINE SULFATE) [Concomitant]

REACTIONS (1)
  - LYMPHOPROLIFERATIVE DISORDER [None]
